FAERS Safety Report 7629367-8 (Version None)
Quarter: 2011Q3

REPORT INFORMATION
  Report Type: 
  Country: None (occurrence: None)
  Receive Date: 20110722
  Receipt Date: 20110715
  Transmission Date: 20111222
  Serious: Yes (Life-Threatening, Hospitalization)
  Sender: FDA-Public Use
  Company Number: US-JNJFOC-20110706960

PATIENT
  Age: 51 Year
  Sex: Male

DRUGS (11)
  1. CARISOPRODOL [Suspect]
     Indication: PRODUCT USED FOR UNKNOWN INDICATION
     Route: 065
  2. THYROID PREPARATIONS [Concomitant]
     Indication: PRODUCT USED FOR UNKNOWN INDICATION
     Route: 065
  3. ULTRAM [Suspect]
     Indication: PRODUCT USED FOR UNKNOWN INDICATION
     Route: 065
  4. ULTRAM [Suspect]
     Route: 065
     Dates: start: 20110402
  5. ANTIPSYCHOTICS (NOS) [Concomitant]
     Indication: PRODUCT USED FOR UNKNOWN INDICATION
     Route: 065
  6. CARISOPRODOL [Suspect]
     Route: 065
     Dates: start: 20110402
  7. OPIOIDS NOS [Suspect]
     Indication: PRODUCT USED FOR UNKNOWN INDICATION
     Route: 065
  8. BENZODIAZEPINES NOS [Suspect]
     Indication: PRODUCT USED FOR UNKNOWN INDICATION
  9. ANTIDEPRESSANT [Concomitant]
     Indication: PRODUCT USED FOR UNKNOWN INDICATION
     Route: 065
  10. SELECTIVE SEROTONIN REUPTAKE INHIBITOR [Concomitant]
     Indication: PRODUCT USED FOR UNKNOWN INDICATION
     Route: 065
  11. ALL OTHER THERAPEUTIC PRODUCTS [Concomitant]
     Indication: PRODUCT USED FOR UNKNOWN INDICATION
     Route: 065

REACTIONS (7)
  - INTENTIONAL DRUG MISUSE [None]
  - RESPIRATORY DEPRESSION [None]
  - AGITATION [None]
  - TACHYCARDIA [None]
  - MULTIPLE DRUG OVERDOSE [None]
  - UNRESPONSIVE TO STIMULI [None]
  - DRUG ABUSE [None]
